FAERS Safety Report 11741966 (Version 1)
Quarter: 2015Q4

REPORT INFORMATION
  Report Type: Spontaneous
  Country: US (occurrence: None)
  Receive Date: 20151113
  Receipt Date: 20151113
  Transmission Date: 20160304
  Serious: Yes (Life-Threatening, Hospitalization)
  Sender: FDA-Public Use
  Company Number: None

PATIENT
  Age: 25 Year
  Sex: Female
  Weight: 52.16 kg

DRUGS (2)
  1. APRI [Concomitant]
     Active Substance: DESOGESTREL\ETHINYL ESTRADIOL
  2. PARAGARD T 380A [Suspect]
     Active Substance: COPPER

REACTIONS (3)
  - Ectopic pregnancy [None]
  - Benign hydatidiform mole [None]
  - Pregnancy test positive [None]

NARRATIVE: CASE EVENT DATE: 20150113
